FAERS Safety Report 4687455-2 (Version None)
Quarter: 2005Q2

REPORT INFORMATION
  Report Type: 
  Country: None (occurrence: None)
  Receive Date: 20050610
  Receipt Date: 20050531
  Transmission Date: 20051028
  Serious: Yes (Hospitalization)
  Sender: FDA-Public Use
  Company Number: US-JNJFOC-20050600294

PATIENT
  Sex: Female
  Weight: 49.9 kg

DRUGS (1)
  1. DURAGESIC-100 [Suspect]
     Route: 062

REACTIONS (11)
  - ANOREXIA [None]
  - APPLICATION SITE DERMATITIS [None]
  - APPLICATION SITE URTICARIA [None]
  - DEHYDRATION [None]
  - DIARRHOEA [None]
  - FEELING HOT AND COLD [None]
  - PYREXIA [None]
  - THERAPEUTIC RESPONSE DECREASED [None]
  - TREMOR [None]
  - VOMITING [None]
  - WEIGHT DECREASED [None]
